FAERS Safety Report 8955326 (Version 1)
Quarter: 2012Q4

REPORT INFORMATION
  Report Type: 
  Country: US (occurrence: None)
  Receive Date: 20121205
  Receipt Date: 20121205
  Transmission Date: 20130627
  Serious: No
  Sender: FDA-Public Use
  Company Number: None

PATIENT
  Sex: Male
  Weight: 76.66 kg

DRUGS (2)
  1. EMEND [Suspect]
     Indication: NAUSEA PROPHYLAXIS
  2. EMEND [Suspect]
     Indication: CHEMOTHERAPY

REACTIONS (2)
  - Thrombocytopenia [None]
  - Circumstance or information capable of leading to medication error [None]
